FAERS Safety Report 17904759 (Version 1)
Quarter: 2020Q2

REPORT INFORMATION
  Report Type: Spontaneous
  Country: US (occurrence: US)
  Receive Date: 20200617
  Receipt Date: 20200617
  Transmission Date: 20200714
  Serious: No
  Sender: FDA-Public Use
  Company Number: US-ALLERGAN-1924112US

PATIENT
  Sex: Male

DRUGS (1)
  1. VIBERZI [Suspect]
     Active Substance: ELUXADOLINE
     Indication: PRODUCT USED FOR UNKNOWN INDICATION
     Dosage: UNK
     Route: 065

REACTIONS (5)
  - Lethargy [Unknown]
  - Withdrawal syndrome [Recovered/Resolved]
  - Product dose omission [Unknown]
  - Pain [Recovered/Resolved]
  - Asthenia [Recovered/Resolved]
